FAERS Safety Report 8478328-8 (Version None)
Quarter: 2012Q2

REPORT INFORMATION
  Report Type: 
  Country: None (occurrence: None)
  Receive Date: 20120615
  Receipt Date: 20120608
  Transmission Date: 20120825
  Serious: Yes (Death, Hospitalization, Other)
  Sender: FDA-Public Use
  Company Number: 2012SP031708

PATIENT
  Age: 52 Year
  Sex: Male

DRUGS (10)
  1. VORICONAZOLE [Concomitant]
  2. MYCOPHENOLATE MOFETIL [Concomitant]
  3. CASPOFUNGIN ACETATE [Concomitant]
  4. AMPHOTERICIN B [Concomitant]
  5. POSACONAZOLE [Suspect]
     Indication: PROPHYLAXIS
  6. POSACONAZOLE [Suspect]
     Indication: FUNGAL INFECTION
  7. ITRACONAZOLE [Concomitant]
  8. INFLIXIMAB [Concomitant]
  9. CORTICOSTEROIDS [Concomitant]
  10. METHYLPREDNISOLONE ACETATE [Concomitant]

REACTIONS (8)
  - CEREBROVASCULAR ACCIDENT [None]
  - DRUG LEVEL BELOW THERAPEUTIC [None]
  - DISEASE PROGRESSION [None]
  - C-REACTIVE PROTEIN INCREASED [None]
  - MULTI-ORGAN FAILURE [None]
  - DIARRHOEA [None]
  - RESPIRATORY DISORDER [None]
  - ACUTE GRAFT VERSUS HOST DISEASE [None]
